FAERS Safety Report 8780318 (Version 1)
Quarter: 2012Q4

REPORT INFORMATION
  Report Type: Spontaneous
  Country: US (occurrence: None)
  Receive Date: 20120831
  Receipt Date: 20120831
  Transmission Date: 20130627
  Serious: Yes (Hospitalization)
  Sender: FDA-Public Use
  Company Number: 2012GMK002915

PATIENT
  Sex: Male

DRUGS (2)
  1. ROPINIROLE [Suspect]
     Indication: DRUG USE FOR UNKNOWN INDICATION
     Dosage: 1 tablet, 3 hours before bedtime
  2. ROPINIROLE [Suspect]
     Indication: DRUG USE FOR UNKNOWN INDICATION
     Dosage: 1 mg, 3 hours before bedtime

REACTIONS (7)
  - Road traffic accident [None]
  - Feeling drunk [None]
  - Balance disorder [None]
  - Speech disorder [None]
  - Malaise [None]
  - Confusional state [None]
  - Disorientation [None]
